FAERS Safety Report 5232349-7 (Version None)
Quarter: 2007Q1

REPORT INFORMATION
  Report Type: 
  Country: None (occurrence: None)
  Receive Date: 20070207
  Receipt Date: 20070126
  Transmission Date: 20070707
  Serious: Yes (Other)
  Sender: FDA-Public Use
  Company Number: US-JNJFOC-20060600575

PATIENT
  Sex: Female
  Weight: 63.05 kg

DRUGS (4)
  1. TOPAMAX [Suspect]
     Indication: MIGRAINE PROPHYLAXIS
     Route: 048
  2. AMITRIPTYLINE HCL [Concomitant]
     Indication: MIGRAINE
  3. ALLERGY SHOTS (NOS) [Concomitant]
  4. CENTRUM SILVER [Concomitant]

REACTIONS (2)
  - OSTEOPOROSIS [None]
  - WHITE BLOOD CELL COUNT DECREASED [None]
